FAERS Safety Report 7249938-0 (Version None)
Quarter: 2011Q1

REPORT INFORMATION
  Report Type: 
  Country: None (occurrence: None)
  Receive Date: 20110128
  Receipt Date: 20101004
  Transmission Date: 20110831
  Serious: No
  Sender: FDA-Public Use
  Company Number: A0884786A

PATIENT
  Age: 63 Year
  Sex: Female

DRUGS (5)
  1. PROZAC [Concomitant]
  2. TOPAMAX [Concomitant]
  3. WELLBUTRIN [Suspect]
     Indication: DEPRESSION
     Dosage: 100MG PER DAY
     Route: 048
     Dates: start: 20100823
  4. EVISTA [Concomitant]
  5. ABILIFY [Concomitant]

REACTIONS (1)
  - CONSTIPATION [None]
